FAERS Safety Report 10475951 (Version 1)
Quarter: 2014Q3

REPORT INFORMATION
  Report Type: Spontaneous
  Country: US (occurrence: US)
  Receive Date: 20140925
  Receipt Date: 20140925
  Transmission Date: 20150326
  Serious: No
  Sender: FDA-Public Use
  Company Number: US-GLAXOSMITHKLINE-A1066702A

PATIENT
  Sex: Male

DRUGS (1)
  1. SEREVENT [Suspect]
     Active Substance: SALMETEROL XINAFOATE
     Dates: start: 201403

REACTIONS (1)
  - Therapeutic response changed [Unknown]

NARRATIVE: CASE EVENT DATE: 201403
